FAERS Safety Report 7609531-4 (Version None)
Quarter: 2011Q3

REPORT INFORMATION
  Report Type: 
  Country: None (occurrence: None)
  Receive Date: 20110714
  Receipt Date: 20110701
  Transmission Date: 20111222
  Serious: Yes (Other)
  Sender: FDA-Public Use
  Company Number: DE-UCBSA-032829

PATIENT
  Sex: Male
  Weight: 90 kg

DRUGS (2)
  1. LEVOCETIRIZINE DIHYDROCHLORIDE [Suspect]
     Dosage: STARTED 2 YEARS AGO;1/2 TO 1 TABLET IN THE EVENING
     Route: 048
  2. NO CONCOMITANT MEDICATION [Concomitant]

REACTIONS (1)
  - INTRAOCULAR PRESSURE INCREASED [None]
